FAERS Safety Report 9595223 (Version 2)
Quarter: 2013Q4

REPORT INFORMATION
  Report Type: Spontaneous
  Country: US (occurrence: US)
  Receive Date: 20131004
  Receipt Date: 20131004
  Transmission Date: 20140711
  Serious: No
  Sender: FDA-Public Use
  Company Number: US-PURDUE-USA-2012-0091756

PATIENT
  Age: 46 Year
  Sex: Female
  Weight: 68.03 kg

DRUGS (2)
  1. BUTRANS [Suspect]
     Indication: PAIN
     Dosage: 5 MCG
     Route: 062
     Dates: start: 20120514
  2. BUTRANS [Suspect]
     Dosage: 10 MCG, UNK
     Route: 062
     Dates: end: 20120710

REACTIONS (1)
  - Application site discolouration [Recovered/Resolved]
